FAERS Safety Report 6328821-9 (Version None)
Quarter: 2009Q3

REPORT INFORMATION
  Report Type: 
  Country: None (occurrence: None)
  Receive Date: 20090818
  Receipt Date: 20090508
  Transmission Date: 20100115
  Serious: No
  Sender: FDA-Public Use
  Company Number: WAES 0809USA03439

PATIENT
  Age: 64 Year
  Sex: Female

DRUGS (1)
  1. JANUVIA [Suspect]
     Indication: DIABETES MELLITUS
     Dosage: 100 MG/DAILY/PO
     Route: 048
     Dates: start: 20080912

REACTIONS (6)
  - DIARRHOEA [None]
  - HEADACHE [None]
  - NASAL CONGESTION [None]
  - NASAL OEDEMA [None]
  - PAIN IN EXTREMITY [None]
  - RHINORRHOEA [None]
